FAERS Safety Report 7428781-3 (Version None)
Quarter: 2011Q2

REPORT INFORMATION
  Report Type: 
  Country: None (occurrence: None)
  Receive Date: 20110415
  Receipt Date: 20110415
  Transmission Date: 20111010
  Serious: Yes (Other)
  Sender: FDA-Public Use
  Company Number: None

PATIENT
  Sex: Female
  Weight: 51.2565 kg

DRUGS (1)
  1. GEODON [Suspect]
     Indication: MANIA
     Dosage: 40MG ONCE A DAY PO
     Route: 048
     Dates: start: 20090101, end: 20090331

REACTIONS (6)
  - FATIGUE [None]
  - TYPE 1 DIABETES MELLITUS [None]
  - THIRST [None]
  - WEIGHT DECREASED [None]
  - HUNGER [None]
  - VISION BLURRED [None]
